FAERS Safety Report 8187416-5 (Version None)
Quarter: 2012Q1

REPORT INFORMATION
  Report Type: 
  Country: None (occurrence: None)
  Receive Date: 20120302
  Receipt Date: 20120217
  Transmission Date: 20120608
  Serious: Yes (Hospitalization)
  Sender: FDA-Public Use
  Company Number: 2012ST000223

PATIENT
  Age: 75 Year
  Sex: Female

DRUGS (2)
  1. MATULANE [Suspect]
     Indication: B-CELL LYMPHOMA
     Dosage: 150 MG;QD; PO, 100 MG;QD; PO,
     Route: 048
     Dates: start: 20120209, end: 20120212
  2. MATULANE [Suspect]
     Indication: B-CELL LYMPHOMA
     Dosage: 150 MG;QD; PO, 100 MG;QD; PO,
     Route: 048
     Dates: start: 20120213, end: 20120213

REACTIONS (2)
  - HOSPITALISATION [None]
  - UNEVALUABLE EVENT [None]
